FAERS Safety Report 11079231 (Version 1)
Quarter: 2015Q2

REPORT INFORMATION
  Report Type: Spontaneous
  Country: US (occurrence: US)
  Receive Date: 20150430
  Receipt Date: 20150430
  Transmission Date: 20150821
  Serious: Yes (Death, Hospitalization, Other)
  Sender: FDA-Public Use
  Company Number: US-B.I. PHARMACEUTICALS,INC./RIDGEFIELD-2015-BI-22137BP

PATIENT
  Age: 80 Year
  Sex: Male

DRUGS (2)
  1. SPIRIVA [Suspect]
     Active Substance: TIOTROPIUM BROMIDE MONOHYDRATE
     Indication: CHRONIC OBSTRUCTIVE PULMONARY DISEASE
     Dosage: 18 MCG
     Route: 055
     Dates: start: 2004
  2. FOLIC ACID. [Concomitant]
     Active Substance: FOLIC ACID
     Indication: SUPPLEMENTATION THERAPY
     Dosage: 1 MG
     Route: 048
     Dates: start: 2014

REACTIONS (8)
  - Gastrointestinal disorder [Unknown]
  - Atrial fibrillation [Unknown]
  - Prostatomegaly [Unknown]
  - Death [Fatal]
  - Hepatic cancer [Unknown]
  - Gastric cancer [Unknown]
  - Aortic aneurysm [Unknown]
  - Renal failure [Unknown]

NARRATIVE: CASE EVENT DATE: 2008
